FAERS Safety Report 6520361-7 (Version None)
Quarter: 2009Q4

REPORT INFORMATION
  Report Type: 
  Country: None (occurrence: None)
  Receive Date: 20091229
  Receipt Date: 20091221
  Transmission Date: 20100525
  Serious: Yes (Hospitalization)
  Sender: FDA-Public Use
  Company Number: US-B.I. PHARMACEUTICALS,INC./RIDGEFIELD-2009-BP-14695BP

PATIENT
  Sex: Female

DRUGS (4)
  1. ZANTAC 150 [Suspect]
     Indication: DYSPEPSIA
     Dosage: 300 MG
     Route: 048
     Dates: start: 20091214, end: 20091215
  2. ZANTAC 150 [Suspect]
     Indication: BACK PAIN
  3. ZANTAC 150 [Suspect]
     Indication: ERUCTATION
  4. NEXIUM [Concomitant]
     Indication: PROPHYLAXIS
     Dates: start: 20091217, end: 20091217

REACTIONS (4)
  - BLOOD GLUCOSE INCREASED [None]
  - CARDIAC ENZYMES INCREASED [None]
  - CARDIAC FAILURE CONGESTIVE [None]
  - CARDIAC MURMUR [None]
